FAERS Safety Report 8165465-0 (Version None)
Quarter: 2012Q1

REPORT INFORMATION
  Report Type: 
  Country: None (occurrence: None)
  Receive Date: 20120227
  Receipt Date: 20110330
  Transmission Date: 20120608
  Serious: No
  Sender: FDA-Public Use
  Company Number: US-MYLANLABS-2011S1006777

PATIENT
  Age: 83 Year
  Sex: Female
  Weight: 74.84 kg

DRUGS (7)
  1. ACTONEL [Concomitant]
     Route: 048
  2. ASPIRIN [Concomitant]
     Route: 048
  3. MELOXICAM [Concomitant]
     Route: 048
  4. LOSARTAN POTASSIUM [Concomitant]
     Route: 048
  5. METOPROLOL TARTRATE [Suspect]
     Route: 048
     Dates: start: 20100901
  6. SIMVASTATIN [Concomitant]
     Route: 048
  7. METOPROLOL TARTRATE [Suspect]
     Indication: BLOOD PRESSURE
     Route: 048
     Dates: start: 20100901

REACTIONS (1)
  - ARTERIOSPASM CORONARY [None]
